FAERS Safety Report 17447436 (Version 1)
Quarter: 2020Q1

REPORT INFORMATION
  Report Type: Report from Study
  Country: US (occurrence: US)
  Receive Date: 20200221
  Receipt Date: 20200221
  Transmission Date: 20200409
  Serious: Yes (Hospitalization)
  Sender: FDA-Public Use
  Company Number: US-EISAI MEDICAL RESEARCH-EC-2019-056633

PATIENT
  Age: 69 Year
  Sex: Female
  Weight: 62 kg

DRUGS (7)
  1. LENVIMA [Suspect]
     Active Substance: LENVATINIB
     Route: 048
     Dates: end: 202002
  2. LENVIMA [Suspect]
     Active Substance: LENVATINIB
     Route: 048
     Dates: start: 2019, end: 20190802
  3. LENVIMA [Suspect]
     Active Substance: LENVATINIB
     Indication: HEPATOCELLULAR CARCINOMA
     Route: 048
     Dates: start: 20190510, end: 2019
  4. TYLENOL [Concomitant]
     Active Substance: ACETAMINOPHEN
  5. LENVIMA [Suspect]
     Active Substance: LENVATINIB
     Route: 048
     Dates: start: 2019, end: 20191106
  6. LENVIMA [Suspect]
     Active Substance: LENVATINIB
     Route: 048
     Dates: start: 20200215
  7. LENVIMA [Suspect]
     Active Substance: LENVATINIB
     Route: 048
     Dates: start: 2019, end: 2019

REACTIONS (15)
  - Cholecystitis infective [Unknown]
  - Gastrointestinal infection [Unknown]
  - Hypertension [Unknown]
  - Insomnia [Unknown]
  - Back pain [Unknown]
  - Abdominal pain upper [Unknown]
  - Hypotension [Unknown]
  - Vomiting [Unknown]
  - Alpha 1 foetoprotein increased [Unknown]
  - Diarrhoea [Unknown]
  - Blood urine present [Unknown]
  - Haematochezia [Unknown]
  - Fatigue [Unknown]
  - Nausea [Unknown]
  - Decreased appetite [Unknown]

NARRATIVE: CASE EVENT DATE: 2019
